FAERS Safety Report 5784679-8 (Version None)
Quarter: 2008Q2

REPORT INFORMATION
  Report Type: 
  Country: None (occurrence: None)
  Receive Date: 20080605
  Receipt Date: 20080411
  Transmission Date: 20081010
  Serious: No
  Sender: FDA-Public Use
  Company Number: A0722257A

PATIENT
  Age: 62 Year
  Sex: Female

DRUGS (2)
  1. ALLI [Suspect]
     Dates: start: 20080213
  2. PAXIL [Concomitant]

REACTIONS (3)
  - ARTHRALGIA [None]
  - JOINT SWELLING [None]
  - RASH [None]
